FAERS Safety Report 8598515-8 (Version None)
Quarter: 2012Q3

REPORT INFORMATION
  Report Type: 
  Country: None (occurrence: None)
  Receive Date: 20120816
  Receipt Date: 20120808
  Transmission Date: 20120928
  Serious: Yes (Other)
  Sender: FDA-Public Use
  Company Number: CA-ROCHE-1093813

PATIENT
  Sex: Female

DRUGS (5)
  1. AVASTIN [Suspect]
     Route: 042
     Dates: start: 20120725
  2. AVASTIN [Suspect]
     Indication: GLIOBLASTOMA
     Route: 042
     Dates: start: 20120323
  3. AVASTIN [Suspect]
     Route: 042
     Dates: start: 20120506
  4. VALPROIC ACID [Concomitant]
  5. AVASTIN [Suspect]
     Route: 042
     Dates: start: 20120404

REACTIONS (5)
  - WHITE BLOOD CELL COUNT DECREASED [None]
  - MONOCYTE COUNT DECREASED [None]
  - PLATELET COUNT DECREASED [None]
  - GLIOBLASTOMA [None]
  - NAUSEA [None]
